FAERS Safety Report 12235008 (Version 1)
Quarter: 2016Q2

REPORT INFORMATION
  Report Type: Spontaneous
  Country: US (occurrence: None)
  Receive Date: 20160401
  Receipt Date: 20160401
  Transmission Date: 20160815
  Serious: Yes (Hospitalization)
  Sender: FDA-Public Use
  Company Number: None

PATIENT
  Age: 40 Year
  Sex: Female
  Weight: 35.7 kg

DRUGS (8)
  1. CYCLOPHOSPHAMIDE. [Suspect]
     Active Substance: CYCLOPHOSPHAMIDE
     Dates: end: 20160302
  2. DOXORUBICIN HYDROCHLORIDE. [Concomitant]
     Active Substance: DOXORUBICIN HYDROCHLORIDE
     Dates: end: 20160302
  3. FAMOTIDINE. [Concomitant]
     Active Substance: FAMOTIDINE
  4. VINCRISTINE SULFATE. [Concomitant]
     Active Substance: VINCRISTINE SULFATE
     Dates: end: 20160302
  5. ACYCLOVIR. [Concomitant]
     Active Substance: ACYCLOVIR
  6. PROCHLORPERAZINE. [Concomitant]
     Active Substance: PROCHLORPERAZINE
  7. RITUXIMAB (MOAB C2B8 ANTI CD20, CHIMERIC) [Suspect]
     Active Substance: RITUXIMAB
     Dates: end: 20160302
  8. PREDNISONE. [Concomitant]
     Active Substance: PREDNISONE
     Dates: end: 20160306

REACTIONS (6)
  - Fall [None]
  - Head injury [None]
  - Headache [None]
  - Central nervous system lesion [None]
  - Nuclear magnetic resonance imaging brain abnormal [None]
  - Disease progression [None]

NARRATIVE: CASE EVENT DATE: 20160323
